FAERS Safety Report 5838575-8 (Version None)
Quarter: 2008Q3

REPORT INFORMATION
  Report Type: 
  Country: None (occurrence: None)
  Receive Date: 20080808
  Receipt Date: 20080519
  Transmission Date: 20090109
  Serious: No
  Sender: FDA-Public Use
  Company Number: A0713834A

PATIENT
  Age: 4 Year
  Sex: Female

DRUGS (4)
  1. ALTABAX [Suspect]
     Indication: GENITAL RASH
     Dosage: 1APP SINGLE DOSE
     Route: 061
     Dates: start: 20080301, end: 20080301
  2. UNKNOWN POWDER [Concomitant]
  3. AUGMENTIN '125' [Concomitant]
  4. MULTI-VITAMIN [Concomitant]

REACTIONS (2)
  - VAGINAL PAIN [None]
  - VULVOVAGINAL BURNING SENSATION [None]
